FAERS Safety Report 4512880-X (Version None)
Quarter: 2004Q4

REPORT INFORMATION
  Report Type: 
  Country: None (occurrence: None)
  Receive Date: 20041118
  Receipt Date: 20041118
  Transmission Date: 20050328
  Serious: Yes (Other)
  Sender: FDA-Public Use
  Company Number: None

PATIENT
  Age: 41 Year
  Sex: Female
  Weight: 63.5036 kg

DRUGS (1)
  1. ZICAM NO-DRIP LIQUID NASAL GEL      ZICAM [Suspect]
     Dosage: 2      2/DAY     NASAL
     Route: 045

REACTIONS (1)
  - ANOSMIA [None]
